FAERS Safety Report 5339590-3 (Version None)
Quarter: 2007Q2

REPORT INFORMATION
  Report Type: 
  Country: None (occurrence: None)
  Receive Date: 20070525
  Receipt Date: 20070518
  Transmission Date: 20071010
  Serious: Yes (Death)
  Sender: FDA-Public Use
  Company Number: 234040K07USA

PATIENT
  Age: 52 Year
  Sex: Female

DRUGS (19)
  1. REBIF [Suspect]
     Indication: MULTIPLE SCLEROSIS
     Dosage: 44 MCG, 3 IN 1 WEEKS, SUBCUTANEOUS
     Route: 058
     Dates: start: 20061206, end: 20070511
  2. ACIPHEX [Concomitant]
  3. ACTIQ LOZENGES (FENTANYL CITRATE) [Concomitant]
  4. AMBIEN [Concomitant]
  5. ATARAX (HYDROXYZINE /00058401/) [Concomitant]
  6. CARDIZEM LA (DILTIAZEM /00489701/) [Concomitant]
  7. CLONIDINE [Concomitant]
  8. COREG [Concomitant]
  9. DIAZEPAM [Concomitant]
  10. FENTANYL [Concomitant]
  11. EFFEXOR [Concomitant]
  12. INSPRA [Concomitant]
  13. HYDROCODONE (HYDROCODONE) [Concomitant]
  14. ACETAMINOPHEN [Concomitant]
  15. REQUIP [Concomitant]
  16. PHENERGAN [Concomitant]
  17. PROVIGIL [Concomitant]
  18. SOMA [Concomitant]
  19. ZELNORM [Concomitant]

REACTIONS (2)
  - CARDIAC FAILURE [None]
  - PULMONARY EMBOLISM [None]
